APPROVED DRUG PRODUCT: TRIMETH/SULFA
Active Ingredient: SULFAMETHOXAZOLE; TRIMETHOPRIM
Strength: 200MG/5ML;40MG/5ML
Dosage Form/Route: SUSPENSION;ORAL
Application: A072398 | Product #001
Applicant: ALPHARMA US PHARMACEUTICALS DIVISION
Approved: May 23, 1988 | RLD: No | RS: No | Type: DISCN